FAERS Safety Report 17210205 (Version 2)
Quarter: 2020Q1

REPORT INFORMATION
  Report Type: Spontaneous
  Country: US (occurrence: US)
  Receive Date: 20191227
  Receipt Date: 20200221
  Transmission Date: 20200409
  Serious: Yes (Hospitalization)
  Sender: FDA-Public Use
  Company Number: US-ACTELION-A-NJ2019-199873

PATIENT
  Sex: Male
  Weight: 73.02 kg

DRUGS (5)
  1. UPTRAVI [Suspect]
     Active Substance: SELEXIPAG
     Indication: PULMONARY ARTERIAL HYPERTENSION
     Dosage: 800 MCG, BID
     Route: 048
  2. UPTRAVI [Suspect]
     Active Substance: SELEXIPAG
     Dosage: 600 MCG, BID
     Route: 048
  3. ELIQUIS [Concomitant]
     Active Substance: APIXABAN
  4. TADALAFIL. [Concomitant]
     Active Substance: TADALAFIL
  5. AMBRISENTAN [Concomitant]
     Active Substance: AMBRISENTAN

REACTIONS (6)
  - Right ventricular failure [Unknown]
  - Condition aggravated [Unknown]
  - Drug intolerance [Unknown]
  - Pulmonary arterial hypertension [Unknown]
  - Arthralgia [Unknown]
  - Headache [Unknown]
